FAERS Safety Report 5033232-2 (Version None)
Quarter: 2006Q2

REPORT INFORMATION
  Report Type: 
  Country: None (occurrence: None)
  Receive Date: 20060620
  Receipt Date: 20060612
  Transmission Date: 20061013
  Serious: Yes (Disabling)
  Sender: FDA-Public Use
  Company Number: 2006-143798-NL

PATIENT
  Age: 60 Year
  Sex: 0

DRUGS (3)
  1. MIRTAZAPINE [Suspect]
     Indication: DEPRESSION
     Dosage: 45 MG/NI
     Route: 048
     Dates: start: 20051201, end: 20060524
  2. MIRTAZAPINE [Suspect]
     Indication: DEPRESSION
     Dosage: 45 MG/NI
     Route: 048
     Dates: start: 20060524, end: 20060601
  3. DIAZEPAM [Concomitant]

REACTIONS (1)
  - TARDIVE DYSKINESIA [None]
